FAERS Safety Report 21661659 (Version 1)
Quarter: 2022Q4

REPORT INFORMATION
  Report Type: Spontaneous
  Country: US (occurrence: None)
  Receive Date: 20221129
  Receipt Date: 20221129
  Transmission Date: 20230112
  Serious: No
  Sender: FDA-Public Use
  Company Number: None

PATIENT
  Age: 91 Year
  Sex: Male
  Weight: 82.1 kg

DRUGS (9)
  1. ABIRATERONE [Suspect]
     Active Substance: ABIRATERONE
     Indication: Prostate cancer
     Dosage: FREQUENCY : DAILY;?
     Route: 048
     Dates: start: 202110
  2. PREDNISONE [Suspect]
     Active Substance: PREDNISONE
     Indication: Prostate cancer
     Dosage: FREQUENCY : TWICE A DAY;?
     Route: 048
     Dates: start: 202110
  3. ASPIRIN [Concomitant]
     Active Substance: ASPIRIN
  4. LACTULOSE [Concomitant]
     Active Substance: LACTULOSE
  5. METHOCRBAMOL [Concomitant]
  6. OME[RAZOLE [Concomitant]
  7. PRAVASTATIN [Concomitant]
     Active Substance: PRAVASTATIN
  8. RANOLAZINE [Concomitant]
     Active Substance: RANOLAZINE
  9. TAMSULOSIN [Concomitant]
     Active Substance: TAMSULOSIN

REACTIONS (1)
  - Hospice care [None]

NARRATIVE: CASE EVENT DATE: 20221129
